FAERS Safety Report 14459519 (Version 1)
Quarter: 2018Q1

REPORT INFORMATION
  Report Type: Spontaneous
  Country: US (occurrence: US)
  Receive Date: 20180130
  Receipt Date: 20180130
  Transmission Date: 20180509
  Serious: Yes (Hospitalization, Other)
  Sender: FDA-Public Use
  Company Number: US-ASTRAZENECA-2018SE11277

PATIENT
  Age: 23500 Day
  Sex: Male

DRUGS (15)
  1. DAPAGLIFLOZIN. [Suspect]
     Active Substance: DAPAGLIFLOZIN
     Indication: TYPE 2 DIABETES MELLITUS
     Route: 048
     Dates: start: 20131122
  2. ONGLYZA [Concomitant]
     Active Substance: SAXAGLIPTIN HYDROCHLORIDE
     Indication: DIABETES MELLITUS
     Route: 048
  3. ALEVE [Suspect]
     Active Substance: NAPROXEN SODIUM
     Dosage: NON AZ PRODUCT
     Route: 065
  4. PLACEBO [Suspect]
     Active Substance: UNSPECIFIED INGREDIENT
     Indication: TYPE 2 DIABETES MELLITUS
     Route: 048
  5. LANOXIN [Concomitant]
     Active Substance: DIGOXIN
     Indication: CARDIOMYOPATHY
     Route: 048
     Dates: start: 20130430
  6. COREG [Concomitant]
     Active Substance: CARVEDILOL
     Indication: CARDIOMYOPATHY
     Route: 048
     Dates: start: 20130515
  7. GLUCOPHAGE [Concomitant]
     Active Substance: METFORMIN HYDROCHLORIDE
     Indication: DIABETES MELLITUS
     Route: 048
  8. CRESTOR [Suspect]
     Active Substance: ROSUVASTATIN CALCIUM
     Indication: HYPERTRIGLYCERIDAEMIA
     Route: 048
  9. METFORMIN [Suspect]
     Active Substance: METFORMIN HYDROCHLORIDE
     Indication: DIABETES MELLITUS
     Route: 065
  10. FUROSEMIDE. [Suspect]
     Active Substance: FUROSEMIDE
     Route: 065
  11. MULTIVITAMINS [Concomitant]
     Active Substance: VITAMINS
     Indication: VITAMIN SUPPLEMENTATION
     Route: 048
     Dates: start: 20130515
  12. LASIX [Concomitant]
     Active Substance: FUROSEMIDE
     Indication: CARDIOMYOPATHY
     Route: 048
     Dates: start: 20130515
  13. ASPIRIN. [Concomitant]
     Active Substance: ASPIRIN
     Indication: ANTIPLATELET THERAPY
     Route: 048
     Dates: start: 20130515
  14. COZAAR [Concomitant]
     Active Substance: LOSARTAN POTASSIUM
     Indication: HYPERTENSION
     Route: 048
     Dates: start: 20130731
  15. ALDACTONE [Concomitant]
     Active Substance: SPIRONOLACTONE
     Indication: CARDIOMYOPATHY
     Route: 048
     Dates: start: 20130523

REACTIONS (5)
  - Small intestinal obstruction [Recovered/Resolved]
  - Colitis [Recovered/Resolved]
  - Acute kidney injury [Recovered/Resolved]
  - Hernia [Recovered/Resolved]
  - Sepsis [Recovered/Resolved]

NARRATIVE: CASE EVENT DATE: 20171127
